FAERS Safety Report 15366530 (Version 8)
Quarter: 2019Q3

REPORT INFORMATION
  Report Type: Spontaneous
  Country: US (occurrence: US)
  Receive Date: 20180910
  Receipt Date: 20190715
  Transmission Date: 20191004
  Serious: Yes (Other)
  Sender: FDA-Public Use
  Company Number: US-SA-2018SA249681

PATIENT
  Age: 63 Year
  Sex: Female

DRUGS (3)
  1. KEVZARA [Suspect]
     Active Substance: SARILUMAB
     Indication: RHEUMATOID ARTHRITIS
     Dosage: 200 MG, QOW
     Route: 058
     Dates: start: 20180601
  2. SILDENAFIL. [Concomitant]
     Active Substance: SILDENAFIL
  3. KEVZARA [Suspect]
     Active Substance: SARILUMAB
     Indication: RAYNAUD^S PHENOMENON
     Dosage: 200 MG, QOW
     Route: 058

REACTIONS (9)
  - Injection site pruritus [Unknown]
  - Scleroderma [Unknown]
  - Product dose omission [Not Recovered/Not Resolved]
  - Injection site erythema [Unknown]
  - Product dose omission [Unknown]
  - Device issue [Unknown]
  - Rheumatoid arthritis [Not Recovered/Not Resolved]
  - Product use in unapproved indication [Unknown]
  - Fatigue [Not Recovered/Not Resolved]

NARRATIVE: CASE EVENT DATE: 2018
